FAERS Safety Report 12686217 (Version 1)
Quarter: 2016Q3

REPORT INFORMATION
  Report Type: Spontaneous
  Country: US (occurrence: US)
  Receive Date: 20160825
  Receipt Date: 20160825
  Transmission Date: 20161109
  Serious: No
  Sender: FDA-Public Use
  Company Number: US-PERRIGO-16US015426

PATIENT
  Sex: Female

DRUGS (1)
  1. NICOTINE POLACRILEX [Suspect]
     Active Substance: NICOTINE
     Indication: SMOKING CESSATION THERAPY
     Dosage: 4 MG, 25 TIMES A DAY
     Route: 002
     Dates: start: 20090710

REACTIONS (3)
  - Nicotine dependence [Not Recovered/Not Resolved]
  - Drug effect decreased [Unknown]
  - Overdose [Unknown]

NARRATIVE: CASE EVENT DATE: 20090710
